FAERS Safety Report 10365490 (Version 2)
Quarter: 2014Q3

REPORT INFORMATION
  Report Type: Spontaneous
  Country: TW (occurrence: TW)
  Receive Date: 20140806
  Receipt Date: 20140827
  Transmission Date: 20150326
  Serious: Yes (Death, Hospitalization)
  Sender: FDA-Public Use
  Company Number: TW-CELGENEUS-153-21880-14073952

PATIENT
  Age: 88 Year
  Sex: Male

DRUGS (2)
  1. REVLIMID [Suspect]
     Active Substance: LENALIDOMIDE
     Indication: PLASMA CELL MYELOMA
     Route: 048
  2. REVLIMID [Suspect]
     Active Substance: LENALIDOMIDE
     Route: 048

REACTIONS (6)
  - Amnesia [Unknown]
  - Gait disturbance [Unknown]
  - Incontinence [Unknown]
  - Muscular weakness [Recovered/Resolved]
  - Irritability [Unknown]
  - Death [Fatal]

NARRATIVE: CASE EVENT DATE: 20140710
